FAERS Safety Report 8339467-5 (Version None)
Quarter: 2012Q2

REPORT INFORMATION
  Report Type: 
  Country: None (occurrence: None)
  Receive Date: 20120507
  Receipt Date: 20120424
  Transmission Date: 20120825
  Serious: Yes (Hospitalization)
  Sender: FDA-Public Use
  Company Number: PHHY2010US18800

PATIENT
  Sex: Female

DRUGS (4)
  1. CLOMID [Concomitant]
     Dosage: 50 MG, FOR 5 DAYS
     Route: 048
     Dates: start: 20100401
  2. FLOVENT [Concomitant]
     Indication: ASTHMA
     Dosage: UPTO 5 PUFF TWO TIMES A DAY
     Dates: start: 20100801
  3. NASONEX [Concomitant]
     Indication: ASTHMA
     Dosage: UNK UKN, UNK
     Dates: start: 20100801
  4. FEMARA [Suspect]
     Indication: ASSISTED FERTILISATION
     Dosage: 5 MG FOR 5 DAYS A MONTH
     Route: 048
     Dates: start: 20090701, end: 20100301

REACTIONS (9)
  - ADRENAL SUPPRESSION [None]
  - BURNOUT SYNDROME [None]
  - HEART RATE INCREASED [None]
  - HYPOAESTHESIA [None]
  - ACTH STIMULATION TEST ABNORMAL [None]
  - ADRENAL INSUFFICIENCY [None]
  - PALPITATIONS [None]
  - PARAESTHESIA [None]
  - ASTHENIA [None]
